FAERS Safety Report 23222165 (Version 3)
Quarter: 2024Q1

REPORT INFORMATION
  Report Type: Spontaneous
  Country: US (occurrence: US)
  Receive Date: 20231123
  Receipt Date: 20240305
  Transmission Date: 20240409
  Serious: No
  Sender: FDA-Public Use
  Company Number: US-SA-SAC20231117001093

PATIENT
  Sex: Female

DRUGS (2)
  1. DUPIXENT [Suspect]
     Active Substance: DUPILUMAB
     Indication: Asthma
     Dosage: 300 MG, QW
     Route: 058
  2. ALVESCO [Concomitant]
     Active Substance: CICLESONIDE
     Dosage: UNK

REACTIONS (6)
  - Anxiety [Unknown]
  - Feeling abnormal [Unknown]
  - Symptom recurrence [Unknown]
  - Asthma [Unknown]
  - Product dose omission issue [Unknown]
  - Inappropriate schedule of product administration [Unknown]
